FAERS Safety Report 15847462 (Version 4)
Quarter: 2019Q1

REPORT INFORMATION
  Report Type: Report from Study
  Country: None (occurrence: CH)
  Receive Date: 20190121
  Receipt Date: 20190211
  Transmission Date: 20190417
  Serious: Yes (Death)
  Sender: FDA-Public Use
  Company Number: CH-ABBVIE-19S-151-2633035-00

PATIENT
  Sex: Female
  Weight: 44 kg

DRUGS (7)
  1. DUODOPA [Suspect]
     Active Substance: CARBIDOPA\LEVODOPA
     Indication: PARKINSON^S DISEASE
     Dosage: 1 CASSETTE/24 HOURS, 24H THERAPY
     Route: 050
     Dates: start: 201206, end: 201901
  2. DUODOPA [Suspect]
     Active Substance: CARBIDOPA\LEVODOPA
     Dosage: 1 CASSETTE/24 HOURS, 24H THERAPY
     Route: 050
     Dates: start: 20090807, end: 20170209
  3. MAGNESIUMASPARTAT [Concomitant]
     Indication: PRODUCT USED FOR UNKNOWN INDICATION
     Route: 048
     Dates: start: 2009, end: 201901
  4. DUODOPA [Suspect]
     Active Substance: CARBIDOPA\LEVODOPA
     Dosage: MD: 3 ML, CRD: 2.9 ML/H, ED: 0.8 ML
     Route: 050
     Dates: start: 20170209, end: 20180425
  5. DUODOPA [Suspect]
     Active Substance: CARBIDOPA\LEVODOPA
     Dosage: 16 H THERAPY?MD: 3 ML, CRD: 2.9 ML/H, ED: 0.8 ML
     Route: 050
     Dates: start: 20180425
  6. RIVASTIGMIN [Concomitant]
     Active Substance: RIVASTIGMINE
     Indication: DEMENTIA
     Dosage: 4.6 MG/H DAILY
     Route: 062
     Dates: start: 20180907, end: 201901
  7. CALCIUM D3 [Concomitant]
     Active Substance: CALCIUM\CHOLECALCIFEROL
     Indication: OSTEOPOROSIS
     Dosage: /440 UI
     Route: 048
     Dates: start: 2009, end: 201901

REACTIONS (3)
  - Cardiac arrest [Fatal]
  - Pneumonia aspiration [Fatal]
  - Haemoglobin decreased [Unknown]
